FAERS Safety Report 6761172-7 (Version None)
Quarter: 2010Q2

REPORT INFORMATION
  Report Type: 
  Country: None (occurrence: None)
  Receive Date: 20100604
  Receipt Date: 20100527
  Transmission Date: 20101027
  Serious: Yes (Death)
  Sender: FDA-Public Use
  Company Number: 1000014130

PATIENT
  Age: 65 Year
  Sex: Female
  Weight: 136.0791 kg

DRUGS (13)
  1. CELEXA [Suspect]
     Dosage: 40 MG (20 MG, 2 IN 1 D), ORAL
     Route: 048
     Dates: end: 20100201
  2. KADIAN [Suspect]
     Indication: BACK PAIN
     Dosage: 160 MG (80 MG, 2 IN 1 D), ORAL
     Route: 048
     Dates: start: 20090101, end: 20100201
  3. DEXTROMETHORPHAN [Suspect]
     Dates: end: 20100201
  4. ALBUTEROL [Concomitant]
  5. CELEBREX [Concomitant]
  6. NAPROSYN [Concomitant]
  7. LASIX [Concomitant]
  8. NEURONTIN [Concomitant]
  9. ROZEREM [Concomitant]
  10. SINGULAIR [Concomitant]
  11. ADVAIR DISKUS 250/50 [Concomitant]
  12. KLONOPIN [Concomitant]
  13. PRILOSEC OTC [Concomitant]

REACTIONS (17)
  - ARTERIOSCLEROSIS [None]
  - ARTERIOSCLEROSIS CORONARY ARTERY [None]
  - CARDIAC FAILURE CONGESTIVE [None]
  - CARDIAC HYPERTROPHY [None]
  - DILATATION VENTRICULAR [None]
  - DRUG SCREEN POSITIVE [None]
  - EMPHYSEMA [None]
  - HEPATIC FIBROSIS [None]
  - HEPATIC STEATOSIS [None]
  - HYDROCEPHALUS [None]
  - HYPERADRENALISM [None]
  - HYPERTENSIVE HEART DISEASE [None]
  - INTERVERTEBRAL DISC DEGENERATION [None]
  - LYMPHOEDEMA [None]
  - PULMONARY CONGESTION [None]
  - PYELONEPHRITIS [None]
  - PYELONEPHRITIS CHRONIC [None]
